FAERS Safety Report 9681233 (Version 2)
Quarter: 2014Q1

REPORT INFORMATION
  Report Type: Report from Study
  Country: BR (occurrence: BR)
  Receive Date: 20131111
  Receipt Date: 20140224
  Transmission Date: 20141002
  Serious: Yes (Hospitalization, Other)
  Sender: FDA-Public Use
  Company Number: PHHY2013BR127576

PATIENT
  Sex: Female
  Weight: 62 kg

DRUGS (12)
  1. ACLASTA [Suspect]
     Indication: OSTEOPOROSIS
     Dosage: 5 MG, UNK
     Route: 042
     Dates: start: 2012
  2. LEVOTHYROXINE [Concomitant]
     Dosage: UNK UKN, UNK
  3. PANTOPRAZOLE [Concomitant]
     Dosage: UNK UKN, UNK
  4. ATENOLOL [Concomitant]
     Indication: HYPERTENSION
     Dosage: 25 MG, UNK
  5. ROSUVASTATIN [Concomitant]
     Dosage: UNK UKN, UNK
  6. BENICAR [Concomitant]
     Indication: HYPERTENSION
     Dosage: 20 MG, UNK
  7. SYNTHROID [Concomitant]
     Dosage: 122 MCG SOME TIME AGO
  8. CALCIUM [Concomitant]
     Dosage: UNK SOMETIME AGO
  9. METFORMIN [Concomitant]
     Dosage: UNK UKN, UNK
  10. MODURETIC [Concomitant]
     Indication: HYPERTENSION
     Dosage: 20 MG, UNK
     Dates: start: 201401
  11. GLIFAGE [Concomitant]
     Indication: DIABETES MELLITUS
     Dosage: 500 MG, UNK
  12. DIAMICRON [Concomitant]
     Indication: DIABETES MELLITUS
     Dosage: 30 MG, UNK

REACTIONS (9)
  - Convulsion [Unknown]
  - Blood sodium decreased [Unknown]
  - Blood potassium decreased [Unknown]
  - Depression [Unknown]
  - General physical health deterioration [Unknown]
  - Sleep disorder [Unknown]
  - Pain [Not Recovered/Not Resolved]
  - Malaise [Unknown]
  - Back pain [Not Recovered/Not Resolved]
